FAERS Safety Report 10834852 (Version 1)
Quarter: 2015Q1

REPORT INFORMATION
  Report Type: Spontaneous
  Country: US (occurrence: US)
  Receive Date: 20150219
  Receipt Date: 20150219
  Transmission Date: 20150721
  Serious: Yes (Disabling)
  Sender: FDA-Public Use
  Company Number: US-ABBVIE-14P-163-1207636-00

PATIENT
  Age: 29 Year
  Sex: Female
  Weight: 73.55 kg

DRUGS (1)
  1. HUMIRA [Suspect]
     Active Substance: ADALIMUMAB
     Indication: PRODUCT USED FOR UNKNOWN INDICATION
     Dates: start: 2012, end: 2013

REACTIONS (4)
  - Migraine [Unknown]
  - Multiple sclerosis [Unknown]
  - Paraesthesia [Unknown]
  - Demyelination [Unknown]

NARRATIVE: CASE EVENT DATE: 201310
